FAERS Safety Report 25902858 (Version 1)
Quarter: 2025Q4

REPORT INFORMATION
  Report Type: Spontaneous
  Country: US (occurrence: US)
  Receive Date: 20251009
  Receipt Date: 20251009
  Transmission Date: 20260117
  Serious: Yes (Hospitalization, Other)
  Sender: ELI LILLY AND COMPANY
  Company Number: US-ELI_LILLY_AND_COMPANY-US202510002246

PATIENT
  Age: 80 Year
  Sex: Male

DRUGS (2)
  1. HUMALOG [Suspect]
     Active Substance: INSULIN LISPRO
     Indication: Diabetes mellitus
     Dosage: UNK UNK, UNKNOWN
     Route: 058
  2. TOUJEO [Concomitant]
     Active Substance: INSULIN GLARGINE
     Indication: Diabetes mellitus

REACTIONS (13)
  - Blood glucose increased [Unknown]
  - Pneumonia [Unknown]
  - Cerebrovascular accident [Unknown]
  - Fall [Unknown]
  - Spinal fracture [Unknown]
  - Rib fracture [Unknown]
  - Femoral neck fracture [Unknown]
  - Pharyngitis streptococcal [Unknown]
  - Arthropathy [Unknown]
  - Hypoacusis [Unknown]
  - Dysphagia [Unknown]
  - Blood pressure increased [Unknown]
  - Speech disorder [Unknown]
